FAERS Safety Report 7329433-0 (Version None)
Quarter: 2011Q1

REPORT INFORMATION
  Report Type: 
  Country: None (occurrence: None)
  Receive Date: 20110225
  Receipt Date: 20110225
  Transmission Date: 20110831
  Serious: Yes (Other)
  Sender: FDA-Public Use
  Company Number: None

PATIENT
  Age: 51 Year
  Sex: Female
  Weight: 88.905 kg

DRUGS (7)
  1. ETODOLAC [Concomitant]
  2. IBUPROFEN [Concomitant]
  3. SINGULAIR [Concomitant]
  4. XOLAIR [Suspect]
     Indication: ASTHMA
     Dosage: 300 MG TWICE DAILY SQ
     Dates: start: 20040101, end: 20110201
  5. SYMBICORT [Concomitant]
  6. NEXIUM [Concomitant]
  7. MOBIC [Concomitant]

REACTIONS (1)
  - MONOCLONAL GAMMOPATHY [None]
